FAERS Safety Report 9752106 (Version 1)
Quarter: 2013Q4

REPORT INFORMATION
  Report Type: Spontaneous
  Country: FR (occurrence: FR)
  Receive Date: 20131213
  Receipt Date: 20131213
  Transmission Date: 20140711
  Serious: Yes (Hospitalization)
  Sender: FDA-Public Use
  Company Number: PHHY2013FR145341

PATIENT
  Age: 67 Year
  Sex: Female

DRUGS (3)
  1. AFINITOR [Suspect]
     Dosage: 10 MG, QD
     Route: 048
     Dates: start: 201301
  2. AFINITOR [Suspect]
     Dosage: 5 MG, QD
     Route: 048
     Dates: end: 20130717
  3. POLARAMINE [Concomitant]

REACTIONS (4)
  - Guttate psoriasis [Recovering/Resolving]
  - Rash generalised [Unknown]
  - Hyperplasia [Unknown]
  - Lymphocytic infiltration [Unknown]
